FAERS Safety Report 18414081 (Version 1)
Quarter: 2020Q4

REPORT INFORMATION
  Report Type: Spontaneous
  Country: CN (occurrence: CN)
  Receive Date: 20201022
  Receipt Date: 20201022
  Transmission Date: 20210114
  Serious: Yes (Hospitalization)
  Sender: FDA-Public Use
  Company Number: CN-ELI_LILLY_AND_COMPANY-CN202010006500

PATIENT
  Age: 38 Year
  Sex: Female

DRUGS (2)
  1. NOVOLIN NOS [Concomitant]
     Active Substance: INSULIN HUMAN
     Indication: PRODUCT USED FOR UNKNOWN INDICATION
     Dosage: UNK UNK, UNKNOWN
     Route: 058
  2. HUMULIN R [Suspect]
     Active Substance: INSULIN HUMAN
     Indication: PRODUCT USED FOR UNKNOWN INDICATION
     Dosage: UNK UNK, UNKNOWN
     Route: 065
     Dates: start: 1999

REACTIONS (5)
  - Blindness [Unknown]
  - Diabetic complication [Unknown]
  - Diabetes mellitus inadequate control [Unknown]
  - Diabetic foot [Unknown]
  - Foot fracture [Unknown]
